FAERS Safety Report 6986580-0 (Version None)
Quarter: 2010Q3

REPORT INFORMATION
  Report Type: 
  Country: None (occurrence: None)
  Receive Date: 20100827
  Receipt Date: 20100507
  Transmission Date: 20110219
  Serious: Yes (Other)
  Sender: FDA-Public Use
  Company Number: AMAG201000233

PATIENT
  Age: 68 Year
  Sex: Male
  Weight: 68 kg

DRUGS (14)
  1. FERAHEME [Suspect]
     Indication: IRON DEFICIENCY ANAEMIA
     Dosage: 510 MG, SINGLE, INTRAVENOUS
     Route: 042
     Dates: start: 20100507, end: 20100507
  2. FERAHEME [Suspect]
     Indication: RENAL FAILURE CHRONIC
     Dosage: 510 MG, SINGLE, INTRAVENOUS
     Route: 042
     Dates: start: 20100507, end: 20100507
  3. PROTONIX [Concomitant]
  4. SIMVASTATIN [Concomitant]
  5. LISINOPRIL (LISINOPRIL DIHYDRATE) [Concomitant]
  6. FOLIC ACID [Concomitant]
  7. COREG [Concomitant]
  8. VITAMIN B1 TAB [Concomitant]
  9. COLACE (DOCUSATE SODIUM) [Concomitant]
  10. CALCIUM CARBONATE [Concomitant]
  11. SUCRALFATE [Concomitant]
  12. TYLENOL W/ CODEINE [Concomitant]
  13. MIRALAX [Concomitant]
  14. ARANESP [Concomitant]

REACTIONS (12)
  - ABDOMINAL PAIN [None]
  - ANXIETY [None]
  - CHILLS [None]
  - DIARRHOEA [None]
  - DYSPNOEA [None]
  - FEELING COLD [None]
  - FLUSHING [None]
  - GASTROINTESTINAL MOTILITY DISORDER [None]
  - HYPERHIDROSIS [None]
  - HYPOTENSION [None]
  - MICTURITION URGENCY [None]
  - VOMITING [None]
